FAERS Safety Report 9747464 (Version 2)
Quarter: 2014Q1

REPORT INFORMATION
  Report Type: Spontaneous
  Country: GB (occurrence: GB)
  Receive Date: 20131212
  Receipt Date: 20140308
  Transmission Date: 20141002
  Serious: Yes (Death, Other)
  Sender: FDA-Public Use
  Company Number: GB-ROCHE-1313633

PATIENT
  Age: 93 Year
  Sex: Female
  Weight: 58 kg

DRUGS (4)
  1. MABTHERA [Suspect]
     Indication: CHRONIC LYMPHOCYTIC LEUKAEMIA
     Route: 051
     Dates: start: 20131118, end: 20131119
  2. ALLOPURINOL [Concomitant]
  3. CHLORAMBUCIL [Concomitant]
  4. CODEINE PHOSPHATE [Concomitant]

REACTIONS (7)
  - Intestinal obstruction [Fatal]
  - Disease progression [Fatal]
  - Chills [Not Recovered/Not Resolved]
  - Feeling cold [Not Recovered/Not Resolved]
  - Pain [Not Recovered/Not Resolved]
  - Abdominal distension [Not Recovered/Not Resolved]
  - Local swelling [Not Recovered/Not Resolved]
